FAERS Safety Report 15282782 (Version 1)
Quarter: 2018Q3

REPORT INFORMATION
  Report Type: Report from Study
  Country: JP (occurrence: JP)
  Receive Date: 20180816
  Receipt Date: 20180816
  Transmission Date: 20181010
  Serious: Yes (Other)
  Sender: FDA-Public Use
  Company Number: JP-ROCHE-2170336

PATIENT
  Age: 51 Year
  Sex: Female

DRUGS (5)
  1. GATIFLO [Concomitant]
     Active Substance: GATIFLOXACIN
     Indication: ANTIBIOTIC PROPHYLAXIS
     Dosage: BEFORE ADMINISTRATION
     Route: 047
     Dates: start: 20150731
  2. EYLEA [Concomitant]
     Active Substance: AFLIBERCEPT
     Indication: MACULAR OEDEMA
     Route: 065
  3. RANIBIZUMAB. [Suspect]
     Active Substance: RANIBIZUMAB
     Indication: RETINAL VEIN OCCLUSION
     Dosage: 0.05 ML, UNK
     Route: 031
     Dates: start: 20150731
  4. EYLEA [Concomitant]
     Active Substance: AFLIBERCEPT
     Indication: RETINAL VEIN OCCLUSION
     Dosage: UNK
     Route: 031
     Dates: start: 20151127
  5. RANIBIZUMAB. [Suspect]
     Active Substance: RANIBIZUMAB
     Indication: MACULAR OEDEMA
     Dosage: 0.05 ML, UNK
     Route: 031
     Dates: start: 20150904

REACTIONS (1)
  - Macular fibrosis [Recovering/Resolving]

NARRATIVE: CASE EVENT DATE: 20160708
